FAERS Safety Report 4788893-X (Version None)
Quarter: 2005Q4

REPORT INFORMATION
  Report Type: 
  Country: None (occurrence: None)
  Receive Date: 20051004
  Receipt Date: 20050921
  Transmission Date: 20060501
  Serious: Yes (Death)
  Sender: FDA-Public Use
  Company Number: 217758

PATIENT
  Age: 42 Year
  Sex: Male

DRUGS (6)
  1. MABTHERA (RITUXIMAB) CONC FOR SOLUTION FOR INFUSION [Suspect]
     Indication: NON-HODGKIN'S LYMPHOMA
     Dosage: INTRAVENOUS
     Route: 042
     Dates: start: 20041201, end: 20050601
  2. VINCRISTINE [Suspect]
     Indication: NON-HODGKIN'S LYMPHOMA
  3. PREDNISONE [Suspect]
     Indication: NON-HODGKIN'S LYMPHOMA
  4. ETOPOSIDE [Suspect]
     Indication: NON-HODGKIN'S LYMPHOMA
  5. EPIRUBICIN [Suspect]
     Indication: NON-HODGKIN'S LYMPHOMA
  6. DEXAMETHASONE [Concomitant]

REACTIONS (5)
  - ACUTE ABDOMEN [None]
  - DISEASE PROGRESSION [None]
  - NON-HODGKIN'S LYMPHOMA [None]
  - PANCYTOPENIA [None]
  - SEPSIS [None]
